FAERS Safety Report 4373559-0 (Version None)
Quarter: 2004Q1

REPORT INFORMATION
  Report Type: 
  Country: None (occurrence: None)
  Receive Date: 20040305
  Receipt Date: 20031209
  Transmission Date: 20041129
  Serious: No
  Sender: FDA-Public Use
  Company Number: 2003UW14133

PATIENT
  Age: 78 Year
  Sex: Male
  Weight: 110.2241 kg

DRUGS (7)
  1. CRESTOR [Suspect]
     Indication: LIPIDS INCREASED
     Dosage: 10 MG QD PO
     Route: 048
     Dates: start: 20030923, end: 20031022
  2. PLAVIX [Concomitant]
  3. COZAAR [Concomitant]
  4. HYDROCHLOROTHIAZIDE [Concomitant]
  5. ZYRTEC [Concomitant]
  6. INSULIN [Concomitant]
  7. ZETIA [Concomitant]

REACTIONS (2)
  - FATIGUE [None]
  - MYALGIA [None]
